FAERS Safety Report 9272158 (Version 1)
Quarter: 2013Q2

REPORT INFORMATION
  Report Type: Spontaneous
  Country: FR (occurrence: FR)
  Receive Date: 20130506
  Receipt Date: 20130506
  Transmission Date: 20140414
  Serious: Yes (Hospitalization)
  Sender: FDA-Public Use
  Company Number: PHHY2013FR043380

PATIENT
  Age: 74 Year
  Sex: Female

DRUGS (2)
  1. ALPRAZOLAM [Suspect]
  2. XANAX [Suspect]

REACTIONS (2)
  - Dyskinesia [Recovered/Resolved]
  - Fall [Recovered/Resolved]
